FAERS Safety Report 13572066 (Version 1)
Quarter: 2017Q2

REPORT INFORMATION
  Report Type: Spontaneous
  Country: US (occurrence: US)
  Receive Date: 20170523
  Receipt Date: 20170523
  Transmission Date: 20170830
  Serious: No
  Sender: FDA-Public Use
  Company Number: US-ACCORD-043405

PATIENT
  Sex: Male

DRUGS (1)
  1. QUETIAPINE FUMARATE ACCORD [Suspect]
     Active Substance: QUETIAPINE FUMARATE
     Indication: DEPRESSION
     Dosage: (STRENGTH: 150 MG), INITIALLY ON UNKNOWN LOW DOSE AND GRADUALLY INCREASED TO 150 MG

REACTIONS (1)
  - Insomnia [Unknown]
